FAERS Safety Report 5175149-9 (Version None)
Quarter: 2006Q4

REPORT INFORMATION
  Report Type: 
  Country: None (occurrence: None)
  Receive Date: 20061206
  Receipt Date: 20061127
  Transmission Date: 20070319
  Serious: Yes (Other)
  Sender: FDA-Public Use
  Company Number: 30621

PATIENT
  Sex: Male

DRUGS (2)
  1. ALDARA [Suspect]
     Indication: ACTINIC KERATOSIS
     Dosage: 5 IN 1 WEEK(S)), TOPICAL
     Route: 061
     Dates: start: 20060101, end: 20060101
  2. ALDARA [Suspect]
     Indication: BASAL CELL CARCINOMA
     Dosage: 5 IN 1 WEEK(S)), TOPICAL
     Route: 061
     Dates: start: 20060101, end: 20060101

REACTIONS (4)
  - APPLICATION SITE ERYTHEMA [None]
  - APPLICATION SITE REACTION [None]
  - FACIAL PALSY [None]
  - SCAB [None]
